FAERS Safety Report 5078587-8 (Version None)
Quarter: 2006Q3

REPORT INFORMATION
  Report Type: 
  Country: None (occurrence: None)
  Receive Date: 20060809
  Receipt Date: 20060809
  Transmission Date: 20061208
  Serious: No
  Sender: FDA-Public Use
  Company Number: None

PATIENT
  Sex: Female
  Weight: 61.2356 kg

DRUGS (1)
  1. EFFEXOR [Suspect]
     Indication: DEPRESSION
     Dosage: SEE IMAGE
     Route: 048
     Dates: start: 19950919, end: 20060427

REACTIONS (22)
  - AGITATION [None]
  - AKATHISIA [None]
  - ARTHRALGIA [None]
  - BALANCE DISORDER [None]
  - BONE DISORDER [None]
  - BRAIN DAMAGE [None]
  - DIZZINESS [None]
  - DRUG INEFFECTIVE [None]
  - FEELING ABNORMAL [None]
  - GASTRIC DISORDER [None]
  - HAEMORRHAGE [None]
  - HYPERHIDROSIS [None]
  - INSOMNIA [None]
  - MALAISE [None]
  - MYALGIA [None]
  - NERVOUSNESS [None]
  - NIGHTMARE [None]
  - PAIN [None]
  - PAIN OF SKIN [None]
  - RASH [None]
  - TINNITUS [None]
  - VISION BLURRED [None]
